FAERS Safety Report 6042363-X (Version None)
Quarter: 2009Q1

REPORT INFORMATION
  Report Type: 
  Country: None (occurrence: None)
  Receive Date: 20090116
  Receipt Date: 20090112
  Transmission Date: 20090719
  Serious: Yes (Life-Threatening, Hospitalization)
  Sender: FDA-Public Use
  Company Number: BE-ASTRAZENECA-2009AC00284

PATIENT
  Age: 72 Year
  Sex: Male
  Weight: 80 kg

DRUGS (5)
  1. MERONEM [Suspect]
     Indication: PYREXIA
     Dosage: 3 X 1G
     Route: 042
     Dates: start: 20081201
  2. MERONEM [Suspect]
     Indication: RESPIRATORY TRACT INFECTION
     Dosage: 3 X 1G
     Route: 042
     Dates: start: 20081201
  3. POLYVITAMINS [Concomitant]
  4. TPN [Concomitant]
  5. PROPHYLACTIC TREATMENT [Concomitant]
     Indication: PROPHYLAXIS

REACTIONS (1)
  - PARTIAL SEIZURES [None]
